FAERS Safety Report 8825711 (Version 2)
Quarter: 2012Q4

REPORT INFORMATION
  Report Type: 
  Country: NL (occurrence: NL)
  Receive Date: 20121004
  Receipt Date: 20121114
  Transmission Date: 20130627
  Serious: Yes (Hospitalization)
  Sender: FDA-Public Use
  Company Number: NL-PFIZER INC-2012240188

PATIENT
  Age: 61 Year
  Sex: Male
  Weight: 103.2 kg

DRUGS (16)
  1. GENOTROPIN [Suspect]
     Indication: PANHYPOPITUITARISM
     Dosage: 0.3 mg, 7 inj/week
     Dates: start: 19951020, end: 2006
  2. LEVOTHYROXINE [Concomitant]
     Indication: TSH DECREASED
     Dosage: 125 ug, 1x/day
     Dates: start: 19690101
  3. LEVOTHYROXINE [Concomitant]
     Indication: PRIMARY HYPOTHYROIDISM
  4. HYDROCORTISONE [Concomitant]
     Indication: ACTH DECREASED
     Dosage: 20 mg, 1x/day
     Dates: start: 19690101
  5. ANDROGEL [Concomitant]
     Indication: LUTEINISING HORMONE DEFICIENCY
     Dosage: 50 mg, 1x/day
     Dates: start: 19690101
  6. ANDROGEL [Concomitant]
     Indication: FOLLICLE-STIMULATING HORMONE DEFICIENCY
  7. ANDROGEL [Concomitant]
     Indication: TESTICULAR HYPOGONADISM
  8. MINRIN [Concomitant]
     Indication: ADH DECREASED
     Dosage: UNK
     Dates: start: 19780901
  9. ZOCOR ^MSD^ [Concomitant]
     Indication: PURE HYPERCHOLESTEROLAEMIA
     Dosage: 10 mg, 1x/day
     Dates: start: 19900101
  10. LOSEC [Concomitant]
     Indication: HERNIA
     Dosage: UNK
     Dates: start: 19930101
  11. DOXYCLINE ^KALBE FARMA^ [Concomitant]
     Indication: UPPER RESPIRATORY TRACT INFECTION
     Dosage: UNK
     Dates: start: 19960304
  12. ACETYLCYSTEINE [Concomitant]
     Indication: UPPER RESPIRATORY TRACT INFECTION
     Dosage: UNK
     Dates: start: 19960304
  13. RENITEC [Concomitant]
     Indication: ESSENTIAL HYPERTENSION
     Dosage: 40 mg, 1x/day
     Dates: start: 19890101
  14. IBUPROFEN [Concomitant]
     Indication: HEADACHE
     Dosage: UNK
     Dates: start: 19980621
  15. RHINOCORT [Concomitant]
     Indication: ALLERGIC RHINITIS
     Dosage: UNK
     Dates: start: 19981013
  16. BISOPROLOL [Concomitant]
     Dosage: 2.5 mg, 1x/day

REACTIONS (2)
  - Carpal tunnel syndrome [Unknown]
  - Gastrointestinal disorder [Unknown]
